FAERS Safety Report 4521998-7 (Version None)
Quarter: 2004Q4

REPORT INFORMATION
  Report Type: 
  Country: None (occurrence: None)
  Receive Date: 20041207
  Receipt Date: 20041119
  Transmission Date: 20050328
  Serious: Yes (Hospitalization, Other)
  Sender: FDA-Public Use
  Company Number: USA040465197

PATIENT
  Age: 82 Year
  Sex: Male
  Weight: 70 kg

DRUGS (6)
  1. FORTEO [Suspect]
     Indication: OSTEOPOROSIS
     Dosage: 20 UG/1 DAY
     Dates: start: 20040809, end: 20040806
  2. FOSAMAX [Concomitant]
  3. FLOMAX [Concomitant]
  4. PROMETHAZINE [Concomitant]
  5. OXYCODONE [Concomitant]
  6. CALTRATE (CALCIUM CARBONATE) [Concomitant]

REACTIONS (13)
  - ABDOMINAL DISCOMFORT [None]
  - ABDOMINAL PAIN LOWER [None]
  - BACK PAIN [None]
  - CARDIAC PACEMAKER INSERTION [None]
  - CONDITION AGGRAVATED [None]
  - DEVICE MALFUNCTION [None]
  - IMPAIRED DRIVING ABILITY [None]
  - INJECTION SITE BURNING [None]
  - MUSCLE CRAMP [None]
  - NAUSEA [None]
  - PAIN IN EXTREMITY [None]
  - SPINAL FUSION SURGERY [None]
  - SURGICAL PROCEDURE REPEATED [None]
